FAERS Safety Report 22540670 (Version 1)
Quarter: 2023Q2

REPORT INFORMATION
  Report Type: Spontaneous
  Country: DE (occurrence: None)
  Receive Date: 20230609
  Receipt Date: 20230609
  Transmission Date: 20230722
  Serious: Yes (Life-Threatening, Hospitalization, Other)
  Sender: FDA-Public Use
  Company Number: 2023A132745

PATIENT
  Age: 54 Year
  Sex: Male
  Weight: 70 kg

DRUGS (6)
  1. DAPAGLIFLOZIN [Suspect]
     Active Substance: DAPAGLIFLOZIN
     Indication: Type 2 diabetes mellitus
     Dosage: 1-0-0
     Dates: start: 202201, end: 20230521
  2. TRULICITY [Concomitant]
     Active Substance: DULAGLUTIDE
     Indication: Type 2 diabetes mellitus
     Dosage: 1X/WOCHE
  3. TOUJEO [Concomitant]
     Active Substance: INSULIN GLARGINE
     Indication: Type 2 diabetes mellitus
     Dosage: 0-0-30
     Dates: start: 2018
  4. HUMALOG [Concomitant]
     Active Substance: INSULIN LISPRO
     Indication: Type 2 diabetes mellitus
     Dosage: 35-35-35
     Dates: start: 2018
  5. RUXOLITINIB [Concomitant]
     Active Substance: RUXOLITINIB
     Dosage: UNBEKANNT
  6. METFORMIN [Concomitant]
     Active Substance: METFORMIN HYDROCHLORIDE
     Indication: Type 2 diabetes mellitus
     Dosage: 1-0-1
     Dates: start: 2002, end: 2023

REACTIONS (10)
  - Diabetic ketoacidosis [Recovering/Resolving]
  - Dehydration [Recovering/Resolving]
  - Respiratory acidosis [Recovering/Resolving]
  - Asthenia [Recovering/Resolving]
  - Hyperventilation [Recovering/Resolving]
  - General physical health deterioration [Recovering/Resolving]
  - Breath odour [Recovering/Resolving]
  - Malaise [Recovering/Resolving]
  - Nausea [Recovering/Resolving]
  - Polyuria [Recovering/Resolving]

NARRATIVE: CASE EVENT DATE: 20230516
